FAERS Safety Report 10307467 (Version 1)
Quarter: 2014Q3

REPORT INFORMATION
  Report Type: Spontaneous
  Country: US (occurrence: None)
  Receive Date: 20140714
  Receipt Date: 20140714
  Transmission Date: 20150326
  Serious: No
  Sender: FDA-Public Use
  Company Number: None

PATIENT
  Age: 70 Year
  Sex: Female
  Weight: 82.56 kg

DRUGS (2)
  1. PACEMAKER [Concomitant]
  2. BENADRYL [Suspect]
     Active Substance: DIPHENHYDRAMINE HYDROCHLORIDE
     Dosage: 1 PILL, ONCE DAILY

REACTIONS (1)
  - Panic attack [None]

NARRATIVE: CASE EVENT DATE: 20140711
